FAERS Safety Report 8781429 (Version 1)
Quarter: 2012Q4

REPORT INFORMATION
  Report Type: 
  Country: US (occurrence: US)
  Receive Date: 20120913
  Receipt Date: 20120913
  Transmission Date: 20130627
  Serious: Yes (Other)
  Sender: FDA-Public Use
  Company Number: PHEH2012US017663

PATIENT
  Age: 49 Year
  Sex: Female

DRUGS (10)
  1. GILENYA [Suspect]
     Indication: MULTIPLE SCLEROSIS
     Dosage: 0.5 mg, QD
     Route: 048
     Dates: start: 20120904
  2. HYDROCHLOROTHIAZID [Concomitant]
     Indication: BLOOD PRESSURE
     Dosage: 50 mg, UNK
  3. ASPIRIN ^BAYER^ [Concomitant]
  4. DEPAKOTE [Concomitant]
     Dosage: 500 mg, BID
  5. PHENYTOIN [Concomitant]
     Dosage: 2 DF, BID
  6. KLOR-CON [Concomitant]
     Dosage: 10 MEq, BID
  7. PRIMIDONE [Concomitant]
     Dosage: 50 mg, QHS
  8. ZOLPIDEM [Concomitant]
     Dosage: 5 mg, QHS
  9. NORTREL [Concomitant]
  10. IMITREX ^CERENEX^ [Concomitant]
     Dosage: 100 mg, PRN

REACTIONS (3)
  - Petit mal epilepsy [Not Recovered/Not Resolved]
  - Fatigue [Recovering/Resolving]
  - Heart rate decreased [Not Recovered/Not Resolved]
